FAERS Safety Report 8859574 (Version 1)
Quarter: 2012Q4

REPORT INFORMATION
  Report Type: 
  Country: US (occurrence: US)
  Receive Date: 20121025
  Receipt Date: 20121025
  Transmission Date: 20130627
  Serious: No
  Sender: FDA-Public Use
  Company Number: US-PFIZER INC-2012262064

PATIENT
  Age: 46 Year
  Sex: Female

DRUGS (6)
  1. DIAZEPAM [Suspect]
     Indication: PAIN
     Dosage: UNK
  2. IBUPROFEN [Suspect]
     Indication: PAIN
     Dosage: 800 mg, UNK
  3. ACETAMINOPHEN [Suspect]
     Indication: PAIN
     Dosage: UNK
  4. HYDROCODONE [Suspect]
     Indication: PAIN
     Dosage: UNK
  5. NABUMETONE [Suspect]
     Indication: PAIN
     Dosage: UNK
  6. CODEINE [Suspect]

REACTIONS (2)
  - Drug ineffective [Unknown]
  - Pain [Unknown]
